FAERS Safety Report 9477504 (Version 1)
Quarter: 2013Q3

REPORT INFORMATION
  Report Type: Spontaneous
  Country: US (occurrence: US)
  Receive Date: 20130827
  Receipt Date: 20130827
  Transmission Date: 20140515
  Serious: Yes (Other)
  Sender: FDA-Public Use
  Company Number: US-AMGEN-USASP2013058449

PATIENT
  Age: 85 Year
  Sex: Female
  Weight: 63.49 kg

DRUGS (14)
  1. ENBREL [Suspect]
     Indication: RHEUMATOID ARTHRITIS
     Dosage: 50 MG, QWK
     Route: 058
     Dates: start: 20080701
  2. METHOTREXATE [Concomitant]
     Dosage: 2.5 MG, UNK
  3. PREDNISONE [Concomitant]
     Dosage: 1 MG, UNK
  4. COUMADIN                           /00014802/ [Concomitant]
     Dosage: 10 MG, UNK
  5. FOLIC ACID [Concomitant]
     Dosage: 1 MG, UNK
  6. ADVAIR HFA [Concomitant]
     Dosage: AER 45/21
  7. LEVOTHYROXIN [Concomitant]
     Dosage: 25 MUG, UNK
  8. METOPROLOL [Concomitant]
     Dosage: 50 MG, ER
  9. DILTIAZEM [Concomitant]
     Dosage: 120 MG, CD
  10. SULFASALAZIN [Concomitant]
     Dosage: 500 MG, UNK
  11. FISH OIL [Concomitant]
     Dosage: 1000 MG, UNK
  12. PRESERVISION LUTEIN [Concomitant]
     Dosage: UNK
  13. VITAMIN C                          /00008001/ [Concomitant]
     Dosage: 500 MG, UNK
  14. CALCIUM +D                         /00944201/ [Concomitant]
     Dosage: UNK

REACTIONS (7)
  - Macular degeneration [Not Recovered/Not Resolved]
  - Wrong technique in drug usage process [Unknown]
  - Extra dose administered [Recovered/Resolved]
  - Therapeutic response decreased [Unknown]
  - Joint swelling [Not Recovered/Not Resolved]
  - Arthropathy [Not Recovered/Not Resolved]
  - Pain [Not Recovered/Not Resolved]
